FAERS Safety Report 20093875 (Version 2)
Quarter: 2022Q1

REPORT INFORMATION
  Report Type: Report from Study
  Country: NL (occurrence: NL)
  Receive Date: 20211121
  Receipt Date: 20220110
  Transmission Date: 20220423
  Serious: Yes (Hospitalization)
  Sender: FDA-Public Use
  Company Number: NL-ABBVIE-21K-114-4168544-00

PATIENT
  Sex: Male

DRUGS (2)
  1. CARBIDOPA\LEVODOPA [Suspect]
     Active Substance: CARBIDOPA\LEVODOPA
     Indication: Parkinson^s disease
     Route: 050
     Dates: start: 20080409
  2. CARBIDOPA\LEVODOPA [Suspect]
     Active Substance: CARBIDOPA\LEVODOPA

REACTIONS (5)
  - Shoulder operation [Recovered/Resolved]
  - Arthralgia [Not Recovered/Not Resolved]
  - On and off phenomenon [Unknown]
  - Stoma site erythema [Unknown]
  - Dyskinesia [Not Recovered/Not Resolved]
